FAERS Safety Report 4843339-8 (Version None)
Quarter: 2005Q4

REPORT INFORMATION
  Report Type: 
  Country: None (occurrence: None)
  Receive Date: 20051201
  Receipt Date: 20051004
  Transmission Date: 20060501
  Serious: Yes (Hospitalization, Disabling)
  Sender: FDA-Public Use
  Company Number: US-MERCK-0510USA02329

PATIENT
  Age: 36 Year
  Sex: Male
  Weight: 95 kg

DRUGS (1)
  1. VIOXX [Suspect]
     Indication: KNEE OPERATION
     Route: 048
     Dates: end: 20010101

REACTIONS (8)
  - ARTHROPATHY [None]
  - BACK DISORDER [None]
  - CORONARY ARTERY DISEASE [None]
  - DEPRESSION [None]
  - GALLBLADDER DISORDER [None]
  - MYOCARDIAL INFARCTION [None]
  - NERVE BLOCK [None]
  - PRESCRIBED OVERDOSE [None]
